FAERS Safety Report 7512610-3 (Version None)
Quarter: 2011Q2

REPORT INFORMATION
  Report Type: 
  Country: None (occurrence: None)
  Receive Date: 20110531
  Receipt Date: 20110520
  Transmission Date: 20111010
  Serious: Yes (Other)
  Sender: FDA-Public Use
  Company Number: JP-B.I. PHARMACEUTICALS,INC./RIDGEFIELD-2011-BP-11546YA

PATIENT
  Sex: Male

DRUGS (9)
  1. CRESTOR [Concomitant]
     Dates: start: 20080516
  2. ZONISAMIDE [Concomitant]
     Dates: start: 20101101
  3. TAMSULOSIN HCL [Suspect]
     Indication: POLLAKIURIA
  4. ASPIRIN [Concomitant]
     Dates: start: 20080516
  5. GLIMICRON (GLICLAZIDE) [Concomitant]
     Dates: start: 20080516
  6. MAGNESIUM OXIDE (MAGNESIUM OXIDE) [Concomitant]
     Dates: start: 20080516
  7. TOPIRAMATE [Concomitant]
     Dates: start: 20101101
  8. TAMSULOSIN HCL [Suspect]
     Indication: BENIGN PROSTATIC HYPERPLASIA
     Dosage: 0.2 MG
     Route: 048
     Dates: start: 20110418, end: 20110420
  9. OPALMON (LIMAPROST) [Concomitant]

REACTIONS (1)
  - EPILEPSY [None]
